FAERS Safety Report 23956167 (Version 1)
Quarter: 2024Q2

REPORT INFORMATION
  Report Type: Spontaneous
  Country: SE (occurrence: SE)
  Receive Date: 20240610
  Receipt Date: 20240610
  Transmission Date: 20240716
  Serious: Yes (Disabling, Other)
  Sender: FDA-Public Use
  Company Number: SE-MYLANLABS-2024M1051235

PATIENT
  Age: 40 Year
  Sex: Female

DRUGS (2)
  1. LYRICA [Suspect]
     Active Substance: PREGABALIN
     Indication: Mental disorder
     Dosage: UNK (START DATE: AROUND 2015)
     Route: 065
     Dates: end: 2017
  2. ZOLPIDEM TARTRATE [Concomitant]
     Active Substance: ZOLPIDEM TARTRATE
     Dosage: UNK
     Route: 065

REACTIONS (4)
  - Intervertebral disc degeneration [Unknown]
  - Seizure [Unknown]
  - Tooth injury [Unknown]
  - Confusional state [Unknown]
